FAERS Safety Report 9019543 (Version 1)
Quarter: 2013Q1

REPORT INFORMATION
  Report Type: Spontaneous
  Country: FR (occurrence: FR)
  Receive Date: 20130118
  Receipt Date: 20130118
  Transmission Date: 20140127
  Serious: Yes (Other)
  Sender: FDA-Public Use
  Company Number: FR-ASTRAZENECA-2013SE02603

PATIENT
  Age: 21732 Day
  Sex: Male

DRUGS (7)
  1. DIPRIVAN [Suspect]
     Indication: GENERAL ANAESTHESIA
     Route: 042
     Dates: start: 20120118
  2. SUFENTA [Suspect]
     Indication: GENERAL ANAESTHESIA
     Dates: start: 20120118
  3. TRACRIUM [Suspect]
     Indication: GENERAL ANAESTHESIA
     Dates: start: 20120118
  4. KETOPROFEN [Concomitant]
  5. EFFERALGAN CODEINE [Concomitant]
  6. CEFAZOLIN [Concomitant]
     Indication: GENERAL ANAESTHESIA
     Dates: start: 20120118
  7. KETAMINE [Concomitant]
     Indication: GENERAL ANAESTHESIA
     Dates: start: 20120118

REACTIONS (1)
  - Generalised erythema [Recovered/Resolved]
